FAERS Safety Report 18354575 (Version 1)
Quarter: 2020Q4

REPORT INFORMATION
  Report Type: Spontaneous
  Country: US (occurrence: US)
  Receive Date: 20201007
  Receipt Date: 20201007
  Transmission Date: 20210114
  Serious: Yes (Death, Life-Threatening, Hospitalization)
  Sender: FDA-Public Use
  Company Number: US-AXELLIA-003399

PATIENT
  Age: 59 Year
  Sex: Female
  Weight: 58.3 kg

DRUGS (1)
  1. VANCOMYCIN [Suspect]
     Active Substance: VANCOMYCIN
     Indication: INFECTION
     Dosage: STRENGTH 1 GM(500 MG VIALS*2)?MANUFACTURER: FRESENIUS KABI
     Route: 042
     Dates: start: 20200919, end: 20200919

REACTIONS (4)
  - Cold sweat [Fatal]
  - Restlessness [Fatal]
  - Feeling abnormal [Fatal]
  - Nausea [Fatal]

NARRATIVE: CASE EVENT DATE: 20200919
